FAERS Safety Report 5115148-6 (Version None)
Quarter: 2006Q3

REPORT INFORMATION
  Report Type: 
  Country: None (occurrence: None)
  Receive Date: 20060922
  Receipt Date: 20060915
  Transmission Date: 20061208
  Serious: Yes (Other)
  Sender: FDA-Public Use
  Company Number: 2006111138

PATIENT
  Sex: Female
  Weight: 52.1637 kg

DRUGS (3)
  1. ZOLOFT [Suspect]
     Indication: OBSESSIVE-COMPULSIVE DISORDER
     Dosage: 200 MG (200 MG, 1 IN 1 D)
     Dates: start: 20060911, end: 20060915
  2. SYNTHROID [Concomitant]
  3. ESTRADIOL [Concomitant]

REACTIONS (8)
  - ABDOMINAL DISTENSION [None]
  - COGNITIVE DISORDER [None]
  - HAEMATOCHEZIA [None]
  - IRREGULAR SLEEP PHASE [None]
  - RAPID EYE MOVEMENTS SLEEP ABNORMAL [None]
  - SUICIDAL IDEATION [None]
  - THERAPEUTIC RESPONSE UNEXPECTED WITH DRUG SUBSTITUTION [None]
  - THINKING ABNORMAL [None]
